FAERS Safety Report 8848877 (Version 2)
Quarter: 2012Q4

REPORT INFORMATION
  Report Type: 
  Country: US (occurrence: US)
  Receive Date: 20121018
  Receipt Date: 20121026
  Transmission Date: 20130627
  Serious: Yes (Hospitalization)
  Sender: FDA-Public Use
  Company Number: US-JNJFOC-20121007267

PATIENT
  Age: 76 Year
  Sex: Female
  Weight: 55.79 kg

DRUGS (6)
  1. XARELTO [Suspect]
     Indication: CEREBROVASCULAR ACCIDENT PROPHYLAXIS
     Route: 048
     Dates: end: 20121009
  2. XARELTO [Suspect]
     Indication: ATRIAL FIBRILLATION
     Route: 048
     Dates: end: 20121009
  3. NORVASC [Concomitant]
  4. PAXIL CR [Concomitant]
  5. SIMVASTIN [Concomitant]
  6. LEVOXYL [Concomitant]
     Dosage: 100 mcg

REACTIONS (1)
  - Haemorrhage intracranial [Recovered/Resolved]
